FAERS Safety Report 7426941-9 (Version None)
Quarter: 2011Q2

REPORT INFORMATION
  Report Type: 
  Country: None (occurrence: None)
  Receive Date: 20110420
  Receipt Date: 20100817
  Transmission Date: 20111010
  Serious: Yes (Hospitalization, Other)
  Sender: FDA-Public Use
  Company Number: US-BAYER-201028547NA

PATIENT
  Age: 29 Year
  Sex: Female
  Weight: 74.83 kg

DRUGS (4)
  1. VICODIN [Concomitant]
  2. YAZ [Suspect]
     Indication: PREMENSTRUAL SYNDROME
     Dosage: UNK
     Route: 048
  3. ZITHROMAX [Concomitant]
  4. ALBUTEROL [Concomitant]
     Indication: DYSPNOEA

REACTIONS (1)
  - PULMONARY EMBOLISM [None]
